FAERS Safety Report 8585893 (Version 2)
Quarter: 2014Q1

REPORT INFORMATION
  Report Type: Spontaneous
  Country: US (occurrence: None)
  Receive Date: 20120323
  Receipt Date: 20140306
  Transmission Date: 20141002
  Serious: Yes (Hospitalization)
  Sender: FDA-Public Use
  Company Number: 163-21880-11040268

PATIENT
  Age: 82 Year
  Sex: Female

DRUGS (6)
  1. REVLIMID [Suspect]
     Indication: PLASMA CELL MYELOMA
     Dosage: 5 MG, 21 IN 28 D, PO
     Route: 048
     Dates: start: 20101014, end: 201103
  2. DECADRON (DEXAMETHASONE) (UNKNOWN) [Suspect]
     Indication: PRODUCT USED FOR UNKNOWN INDICATION
  3. PROCARDIA (NIFEDIPINE) (UNKNOWN) (NIFEDIPINE) [Concomitant]
  4. LEVOTHYROXINE (LEVOTHYROXINE) (UNKNOWN) [Concomitant]
  5. BENAZEPRIL (BENAZEPRIL) (UNKNOWN) [Concomitant]
  6. ANTIHYPERTENSIVES (ANTIHYPERTENSIVES) [Concomitant]

REACTIONS (1)
  - Transient ischaemic attack [None]
